FAERS Safety Report 19247940 (Version 3)
Quarter: 2022Q1

REPORT INFORMATION
  Report Type: Report from Study
  Country: US (occurrence: US)
  Receive Date: 20210512
  Receipt Date: 20220308
  Transmission Date: 20220423
  Serious: Yes (Hospitalization, Other)
  Sender: FDA-Public Use
  Company Number: US-TAKEDA-US202023753

PATIENT
  Age: 76 Year
  Sex: Female

DRUGS (1)
  1. HUMAN IMMUNOGLOBULIN G [Suspect]
     Active Substance: HUMAN IMMUNOGLOBULIN G
     Indication: Primary immunodeficiency syndrome
     Dosage: UNK
     Route: 065

REACTIONS (13)
  - Illness [Unknown]
  - Atrial fibrillation [Unknown]
  - Pneumonia [Unknown]
  - Pain [Unknown]
  - Chills [Unknown]
  - Renal failure [Unknown]
  - Cerebrovascular accident [Unknown]
  - Back disorder [Unknown]
  - Arthropathy [Unknown]
  - Cardiac disorder [Unknown]
  - Swelling [Unknown]
  - Lung disorder [Unknown]
  - Renal disorder [Unknown]

NARRATIVE: CASE EVENT DATE: 20201201
